FAERS Safety Report 7865756-4 (Version None)
Quarter: 2011Q4

REPORT INFORMATION
  Report Type: 
  Country: None (occurrence: None)
  Receive Date: 20111028
  Receipt Date: 20110218
  Transmission Date: 20120403
  Serious: No
  Sender: FDA-Public Use
  Company Number: US-GLAXOSMITHKLINE-A0914437A

PATIENT
  Age: 50 Year
  Sex: Male

DRUGS (5)
  1. VERAMYST [Concomitant]
  2. FLOVENT [Concomitant]
  3. OMEPRAZOLE [Concomitant]
  4. ADVAIR DISKUS 100/50 [Suspect]
     Indication: ASTHMA
     Dosage: 1PUFF TWICE PER DAY
     Route: 055
     Dates: start: 20060101
  5. ALBUTEROL INHALER [Concomitant]

REACTIONS (3)
  - LARYNGITIS [None]
  - APHONIA [None]
  - DYSPHONIA [None]
